FAERS Safety Report 22056320 (Version 2)
Quarter: 2023Q1

REPORT INFORMATION
  Report Type: Spontaneous
  Country: BR (occurrence: BR)
  Receive Date: 20230302
  Receipt Date: 20230314
  Transmission Date: 20230418
  Serious: Yes (Other)
  Sender: FDA-Public Use
  Company Number: BR-BAXTER-2023BAX013921

PATIENT
  Age: 39 Year
  Sex: Female
  Weight: 70 kg

DRUGS (10)
  1. SEVOFLURANE [Suspect]
     Active Substance: SEVOFLURANE
     Indication: Sedative therapy
     Dosage: 30 MILLILITERS (ML)
     Dates: start: 20230112
  2. CLINDAMYCIN [Suspect]
     Active Substance: CLINDAMYCIN
     Indication: Antibiotic prophylaxis
     Dosage: (STRENGTH: 600 MG/4 ML) AT A DOSE OF 900 MILLIGRAMS (MG) ADMINISTERED VIA ENDOVENOUS ROUTE
     Route: 042
     Dates: start: 20230112, end: 20230112
  3. PROPOFOL [Suspect]
     Active Substance: PROPOFOL
     Indication: Sedative therapy
     Dosage: 150 MICROGRAM (MCG) ADMINISTERED VIA ENDOVENOUS ROUTE
     Route: 042
     Dates: start: 20230112, end: 20230112
  4. ROCURONIUM BROMIDE [Suspect]
     Active Substance: ROCURONIUM BROMIDE
     Indication: Sedative therapy
     Dosage: 40 MILLIGRAMS (MG) ADMINISTERED VIA ENDOVENOUS ROUTE
     Route: 042
     Dates: start: 20230112, end: 20230112
  5. SUFENTANIL CITRATE [Suspect]
     Active Substance: SUFENTANIL CITRATE
     Indication: Sedative therapy
     Dosage: 25 MICROGRAM (MCG) ADMINISTERED VIA ENDOVENOUS ROUTE
     Route: 042
     Dates: start: 20230112, end: 20230112
  6. MIDAZOLAM HYDROCHLORIDE [Suspect]
     Active Substance: MIDAZOLAM HYDROCHLORIDE
     Indication: Sedative therapy
     Dosage: 1 AMPOULE ADMINISTERED VIA ENDOVENOUS ROUTE
     Route: 042
     Dates: start: 20230112, end: 20230112
  7. DIPYRONE [Suspect]
     Active Substance: DIPYRONE
     Indication: Analgesic therapy
     Dosage: (STRENGTH: 1 G/2 ML) AT A DOSE OF 2 EV AMPOULES, ADMINISTERED VIA ENDOVENOUS ROUTE
     Route: 042
     Dates: start: 20230112, end: 20230112
  8. KETOROLAC TROMETHAMINE [Suspect]
     Active Substance: KETOROLAC TROMETHAMINE
     Indication: Analgesic therapy
     Dosage: 1 AMPOULE
     Route: 065
     Dates: start: 20230112
  9. ONDANSETRON HYDROCHLORIDE [Suspect]
     Active Substance: ONDANSETRON HYDROCHLORIDE
     Indication: Prophylaxis of nausea and vomiting
     Dosage: (STRENGTH: 8 MG/4 ML) AT A DOSE OF 1 AMPOULE
     Route: 065
     Dates: start: 20230112
  10. OMEPRAZOLE [Suspect]
     Active Substance: OMEPRAZOLE
     Indication: Prophylaxis
     Dosage: 1 AMPOULE
     Route: 065
     Dates: start: 20230112

REACTIONS (4)
  - Cyanosis [Recovered/Resolved]
  - Nasal oedema [Recovered/Resolved]
  - Anaphylactic reaction [Unknown]
  - Eyelid oedema [Unknown]

NARRATIVE: CASE EVENT DATE: 20230112
